FAERS Safety Report 12103829 (Version 2)
Quarter: 2016Q1

REPORT INFORMATION
  Report Type: Spontaneous
  Country: TR (occurrence: TR)
  Receive Date: 20160223
  Receipt Date: 20160309
  Transmission Date: 20160526
  Serious: Yes (Other)
  Sender: FDA-Public Use
  Company Number: TR-ROCHE-1714663

PATIENT
  Age: 43 Year
  Sex: Male

DRUGS (3)
  1. XOLAIR [Suspect]
     Active Substance: OMALIZUMAB
     Indication: ASTHMA
     Route: 058
     Dates: start: 20120910
  2. FORADIL [Concomitant]
     Active Substance: FORMOTEROL FUMARATE
  3. SINGULAIR [Concomitant]
     Active Substance: MONTELUKAST SODIUM

REACTIONS (1)
  - Pneumonia [Recovered/Resolved]

NARRATIVE: CASE EVENT DATE: 20151125
